FAERS Safety Report 8085825-6 (Version None)
Quarter: 2012Q1

REPORT INFORMATION
  Report Type: 
  Country: None (occurrence: None)
  Receive Date: 20120128
  Receipt Date: 20110609
  Transmission Date: 20120608
  Serious: No
  Sender: FDA-Public Use
  Company Number: US-ABBOTT-11P-163-0731362-00

PATIENT
  Age: 44 Year
  Sex: Male

DRUGS (3)
  1. ZOLOFT [Concomitant]
     Indication: PSYCHOMOTOR HYPERACTIVITY
     Route: 048
  2. HUMIRA [Suspect]
     Indication: PSORIASIS
     Dates: start: 20100401
  3. ADDERALL 5 [Concomitant]
     Indication: PSYCHOMOTOR HYPERACTIVITY
     Route: 048

REACTIONS (2)
  - DRUG DOSE OMISSION [None]
  - ARTHRALGIA [None]
